FAERS Safety Report 6507256-X (Version None)
Quarter: 2009Q4

REPORT INFORMATION
  Report Type: 
  Country: None (occurrence: None)
  Receive Date: 20091221
  Receipt Date: 20091215
  Transmission Date: 20100525
  Serious: Yes (Hospitalization)
  Sender: FDA-Public Use
  Company Number: PHHO2009DE11825

PATIENT
  Sex: Female

DRUGS (1)
  1. CGS 20267 T30748+TAB [Suspect]
     Indication: BREAST CANCER
     Dosage: 2.5 MG, QD
     Route: 048
     Dates: start: 20070307

REACTIONS (7)
  - CHEST PAIN [None]
  - COLON ADENOMA [None]
  - INTESTINAL RESECTION [None]
  - MUSCULOSKELETAL PAIN [None]
  - NEOPLASM [None]
  - PAIN IN EXTREMITY [None]
  - SPINAL LAMINECTOMY [None]
